FAERS Safety Report 6739280-6 (Version None)
Quarter: 2010Q2

REPORT INFORMATION
  Report Type: 
  Country: None (occurrence: None)
  Receive Date: 20100525
  Receipt Date: 20100512
  Transmission Date: 20101027
  Serious: Yes (Other)
  Sender: FDA-Public Use
  Company Number: PHHY2010CA29367

PATIENT
  Sex: Female

DRUGS (8)
  1. GLEEVEC [Suspect]
     Indication: CHRONIC MYELOID LEUKAEMIA
     Dosage: 400 MG, UNK
     Route: 048
     Dates: start: 20080123
  2. GLEEVEC [Suspect]
     Dosage: UNK
     Route: 048
     Dates: start: 20090201, end: 20100511
  3. CITALOPRAM [Concomitant]
  4. HYDROCHLOROTHIAZIDE [Concomitant]
  5. TYLENOL [Concomitant]
  6. GABAPENTIN [Concomitant]
  7. PARIET [Concomitant]
  8. ATIVAN [Concomitant]

REACTIONS (4)
  - BLISTER [None]
  - PSEUDOPORPHYRIA [None]
  - RASH [None]
  - SKIN LESION [None]
